FAERS Safety Report 12170236 (Version 2)
Quarter: 2016Q1

REPORT INFORMATION
  Report Type: Spontaneous
  Country: US (occurrence: US)
  Receive Date: 20160311
  Receipt Date: 20160315
  Transmission Date: 20160526
  Serious: Yes (Life-Threatening, Other)
  Sender: FDA-Public Use
  Company Number: US-ROCHE-1723199

PATIENT
  Sex: Male

DRUGS (6)
  1. TYLENOL [Concomitant]
     Active Substance: ACETAMINOPHEN
  2. TREANDA [Concomitant]
     Active Substance: BENDAMUSTINE HYDROCHLORIDE
  3. BENADRYL [Concomitant]
     Active Substance: DIPHENHYDRAMINE HYDROCHLORIDE
  4. VELCADE [Concomitant]
     Active Substance: BORTEZOMIB
  5. RITUXAN [Suspect]
     Active Substance: RITUXIMAB
     Indication: MANTLE CELL LYMPHOMA
     Dosage: STANDARD DOSE, 21 DAY PROTOCOL
     Route: 042
     Dates: start: 2011
  6. PREDNISONE. [Concomitant]
     Active Substance: PREDNISONE

REACTIONS (7)
  - Body temperature increased [Unknown]
  - Tumour lysis syndrome [Unknown]
  - Mantle cell lymphoma [Unknown]
  - Vomiting [Unknown]
  - Tremor [Unknown]
  - Nausea [Unknown]
  - Infusion related reaction [Unknown]

NARRATIVE: CASE EVENT DATE: 2011
